FAERS Safety Report 17377308 (Version 5)
Quarter: 2020Q3

REPORT INFORMATION
  Report Type: Spontaneous
  Country: US (occurrence: US)
  Receive Date: 20200206
  Receipt Date: 20200806
  Transmission Date: 20201102
  Serious: No
  Sender: FDA-Public Use
  Company Number: US-PFIZER INC-2020050231

PATIENT
  Age: 61 Year
  Sex: Female

DRUGS (3)
  1. XELJANZ XR [Suspect]
     Active Substance: TOFACITINIB CITRATE
     Indication: RHEUMATOID ARTHRITIS
     Dosage: 11 MG, 1X/DAY
     Route: 048
     Dates: start: 201802, end: 20200617
  2. MELOXICAM. [Concomitant]
     Active Substance: MELOXICAM
     Dosage: UNK [DECREASED DOSING]
     Dates: start: 202003
  3. MELOXICAM. [Concomitant]
     Active Substance: MELOXICAM
     Dosage: UNK

REACTIONS (5)
  - Skin haemorrhage [Unknown]
  - Erythema [Unknown]
  - Drug ineffective [Unknown]
  - Petechiae [Not Recovered/Not Resolved]
  - Peripheral swelling [Unknown]

NARRATIVE: CASE EVENT DATE: 201902
